FAERS Safety Report 20962174 (Version 2)
Quarter: 2022Q2

REPORT INFORMATION
  Report Type: Spontaneous
  Country: CN (occurrence: CN)
  Receive Date: 20220615
  Receipt Date: 20220617
  Transmission Date: 20220721
  Serious: Yes (Other)
  Sender: FDA-Public Use
  Company Number: CN-009507513-2206CHN003709

PATIENT
  Age: 54 Year
  Sex: Female

DRUGS (4)
  1. CILASTATIN SODIUM\IMIPENEM [Suspect]
     Active Substance: CILASTATIN SODIUM\IMIPENEM
     Indication: Pyelonephritis acute
     Dosage: 1 G, ONCE
     Route: 041
     Dates: start: 20220530, end: 20220530
  2. CILASTATIN SODIUM\IMIPENEM [Suspect]
     Active Substance: CILASTATIN SODIUM\IMIPENEM
     Indication: Anti-infective therapy
  3. LEVOFLOXACIN LACTATE [Concomitant]
     Active Substance: LEVOFLOXACIN LACTATE
     Indication: Pyelonephritis acute
     Dosage: 0.5 G, DAILY
     Route: 041
     Dates: start: 20220530, end: 20220531
  4. FAMOTIDINE [Concomitant]
     Active Substance: FAMOTIDINE
     Indication: Abdominal discomfort
     Dosage: 20 MG, DAILY
     Route: 041
     Dates: start: 20220530, end: 20220531

REACTIONS (1)
  - Infusion related reaction [Recovering/Resolving]

NARRATIVE: CASE EVENT DATE: 20220530
